FAERS Safety Report 4718491-5 (Version None)
Quarter: 2005Q3

REPORT INFORMATION
  Report Type: 
  Country: None (occurrence: None)
  Receive Date: 20050720
  Receipt Date: 20050714
  Transmission Date: 20060218
  Serious: Yes (Other)
  Sender: FDA-Public Use
  Company Number: PHNR2005AU01117

PATIENT
  Sex: Male

DRUGS (2)
  1. ZOMETA [Suspect]
     Dosage: 4 MG, QMO
     Dates: start: 20040429, end: 20050110
  2. CHEMOTHERAPEUTICS,OTHER [Concomitant]
     Dates: start: 20040920, end: 20041201

REACTIONS (4)
  - ASEPTIC NECROSIS BONE [None]
  - OSTEONECROSIS [None]
  - PAIN IN JAW [None]
  - SOFT TISSUE INFLAMMATION [None]
